FAERS Safety Report 24365888 (Version 5)
Quarter: 2025Q3

REPORT INFORMATION
  Report Type: Report from Study
  Country: EU (occurrence: EU)
  Receive Date: 20240926
  Receipt Date: 20250814
  Transmission Date: 20251020
  Serious: Yes (Other)
  Sender: MYLAN
  Company Number: EU-ROCHE-2766429

PATIENT
  Age: 42 Year
  Sex: Female

DRUGS (136)
  1. DOXAZOSIN [Suspect]
     Active Substance: DOXAZOSIN MESYLATE
     Indication: Product used for unknown indication
  2. DOXAZOSIN [Suspect]
     Active Substance: DOXAZOSIN MESYLATE
     Route: 065
  3. DOXAZOSIN [Suspect]
     Active Substance: DOXAZOSIN MESYLATE
     Route: 065
  4. DOXAZOSIN [Suspect]
     Active Substance: DOXAZOSIN MESYLATE
  5. EZETIMIBE [Suspect]
     Active Substance: EZETIMIBE
     Indication: Product used for unknown indication
     Dosage: 10 MILLIGRAM, QD
  6. EZETIMIBE [Suspect]
     Active Substance: EZETIMIBE
     Dosage: 10 MILLIGRAM, QD
  7. EZETIMIBE [Suspect]
     Active Substance: EZETIMIBE
     Dosage: 10 MILLIGRAM, QD
     Route: 065
  8. EZETIMIBE [Suspect]
     Active Substance: EZETIMIBE
     Dosage: 10 MILLIGRAM, QD
     Route: 065
  9. EZETIMIBE [Suspect]
     Active Substance: EZETIMIBE
     Dosage: 10 MILLIGRAM, QD
  10. EZETIMIBE [Suspect]
     Active Substance: EZETIMIBE
     Dosage: 10 MILLIGRAM, QD
  11. EZETIMIBE [Suspect]
     Active Substance: EZETIMIBE
     Dosage: 10 MILLIGRAM, QD
     Route: 065
  12. EZETIMIBE [Suspect]
     Active Substance: EZETIMIBE
     Dosage: 10 MILLIGRAM, QD
     Route: 065
  13. OCREVUS [Suspect]
     Active Substance: OCRELIZUMAB
     Indication: Neuromyelitis optica spectrum disorder
     Route: 042
  14. OCREVUS [Suspect]
     Active Substance: OCRELIZUMAB
  15. OCREVUS [Suspect]
     Active Substance: OCRELIZUMAB
  16. OCREVUS [Suspect]
     Active Substance: OCRELIZUMAB
     Route: 042
  17. OCREVUS [Suspect]
     Active Substance: OCRELIZUMAB
     Route: 042
  18. OCREVUS [Suspect]
     Active Substance: OCRELIZUMAB
  19. OCREVUS [Suspect]
     Active Substance: OCRELIZUMAB
  20. OCREVUS [Suspect]
     Active Substance: OCRELIZUMAB
     Route: 042
  21. OCREVUS [Suspect]
     Active Substance: OCRELIZUMAB
     Route: 042
  22. OCREVUS [Suspect]
     Active Substance: OCRELIZUMAB
     Route: 042
  23. OCREVUS [Suspect]
     Active Substance: OCRELIZUMAB
  24. OCREVUS [Suspect]
     Active Substance: OCRELIZUMAB
  25. OCREVUS [Suspect]
     Active Substance: OCRELIZUMAB
     Indication: Neuromyelitis optica spectrum disorder
  26. OCREVUS [Suspect]
     Active Substance: OCRELIZUMAB
     Route: 058
  27. OCREVUS [Suspect]
     Active Substance: OCRELIZUMAB
     Route: 058
  28. OCREVUS [Suspect]
     Active Substance: OCRELIZUMAB
  29. METAMIZOLE [Concomitant]
     Active Substance: METAMIZOLE
  30. METAMIZOLE [Concomitant]
     Active Substance: METAMIZOLE
  31. METAMIZOLE [Concomitant]
     Active Substance: METAMIZOLE
     Route: 065
  32. METAMIZOLE [Concomitant]
     Active Substance: METAMIZOLE
     Route: 065
  33. METAMIZOLE [Concomitant]
     Active Substance: METAMIZOLE
  34. METAMIZOLE [Concomitant]
     Active Substance: METAMIZOLE
  35. METAMIZOLE [Concomitant]
     Active Substance: METAMIZOLE
     Route: 065
  36. METAMIZOLE [Concomitant]
     Active Substance: METAMIZOLE
     Route: 065
  37. RAMIPRIL [Concomitant]
     Active Substance: RAMIPRIL
     Dosage: 5 MILLIGRAM, BID, 1-0-1
  38. RAMIPRIL [Concomitant]
     Active Substance: RAMIPRIL
     Dosage: 5 MILLIGRAM, BID, 1-0-1
  39. RAMIPRIL [Concomitant]
     Active Substance: RAMIPRIL
     Dosage: 5 MILLIGRAM, BID, 1-0-1
     Route: 065
  40. RAMIPRIL [Concomitant]
     Active Substance: RAMIPRIL
     Dosage: 5 MILLIGRAM, BID, 1-0-1
     Route: 065
  41. RAMIPRIL [Concomitant]
     Active Substance: RAMIPRIL
     Dosage: 5 MILLIGRAM, BID, 1-0-1
  42. RAMIPRIL [Concomitant]
     Active Substance: RAMIPRIL
     Dosage: 5 MILLIGRAM, BID, 1-0-1
  43. RAMIPRIL [Concomitant]
     Active Substance: RAMIPRIL
     Dosage: 5 MILLIGRAM, BID, 1-0-1
     Route: 065
  44. RAMIPRIL [Concomitant]
     Active Substance: RAMIPRIL
     Dosage: 5 MILLIGRAM, BID, 1-0-1
     Route: 065
  45. AMINOPHYLLINE\QUININE SULFATE [Concomitant]
     Active Substance: AMINOPHYLLINE\QUININE SULFATE
  46. AMINOPHYLLINE\QUININE SULFATE [Concomitant]
     Active Substance: AMINOPHYLLINE\QUININE SULFATE
  47. AMINOPHYLLINE\QUININE SULFATE [Concomitant]
     Active Substance: AMINOPHYLLINE\QUININE SULFATE
     Route: 065
  48. AMINOPHYLLINE\QUININE SULFATE [Concomitant]
     Active Substance: AMINOPHYLLINE\QUININE SULFATE
     Route: 065
  49. AMINOPHYLLINE\QUININE SULFATE [Concomitant]
     Active Substance: AMINOPHYLLINE\QUININE SULFATE
  50. AMINOPHYLLINE\QUININE SULFATE [Concomitant]
     Active Substance: AMINOPHYLLINE\QUININE SULFATE
  51. AMINOPHYLLINE\QUININE SULFATE [Concomitant]
     Active Substance: AMINOPHYLLINE\QUININE SULFATE
     Route: 065
  52. AMINOPHYLLINE\QUININE SULFATE [Concomitant]
     Active Substance: AMINOPHYLLINE\QUININE SULFATE
     Route: 065
  53. TILIDINE [Concomitant]
     Active Substance: TILIDINE
  54. TILIDINE [Concomitant]
     Active Substance: TILIDINE
  55. TILIDINE [Concomitant]
     Active Substance: TILIDINE
     Route: 065
  56. TILIDINE [Concomitant]
     Active Substance: TILIDINE
     Route: 065
  57. TILIDINE [Concomitant]
     Active Substance: TILIDINE
  58. TILIDINE [Concomitant]
     Active Substance: TILIDINE
  59. TILIDINE [Concomitant]
     Active Substance: TILIDINE
     Route: 065
  60. TILIDINE [Concomitant]
     Active Substance: TILIDINE
     Route: 065
  61. METFORMIN [Concomitant]
     Active Substance: METFORMIN HYDROCHLORIDE
     Dosage: 425 MILLIGRAM, BID
  62. METFORMIN [Concomitant]
     Active Substance: METFORMIN HYDROCHLORIDE
     Dosage: 425 MILLIGRAM, BID
     Route: 065
  63. METFORMIN [Concomitant]
     Active Substance: METFORMIN HYDROCHLORIDE
     Dosage: 425 MILLIGRAM, BID
     Route: 065
  64. METFORMIN [Concomitant]
     Active Substance: METFORMIN HYDROCHLORIDE
     Dosage: 425 MILLIGRAM, BID
  65. AMLODIPINE [Concomitant]
     Active Substance: AMLODIPINE BESYLATE
     Dosage: 5 MILLIGRAM, BID, 1-0-1
  66. AMLODIPINE [Concomitant]
     Active Substance: AMLODIPINE BESYLATE
     Dosage: 5 MILLIGRAM, BID, 1-0-1
  67. AMLODIPINE [Concomitant]
     Active Substance: AMLODIPINE BESYLATE
     Dosage: 5 MILLIGRAM, BID, 1-0-1
     Route: 065
  68. AMLODIPINE [Concomitant]
     Active Substance: AMLODIPINE BESYLATE
     Dosage: 5 MILLIGRAM, BID, 1-0-1
     Route: 065
  69. AMLODIPINE [Concomitant]
     Active Substance: AMLODIPINE BESYLATE
     Dosage: 10 MILLIGRAM, QD (5 MG, 2X/DAY, 1-0-1)
     Route: 065
  70. AMLODIPINE [Concomitant]
     Active Substance: AMLODIPINE BESYLATE
     Dosage: 10 MILLIGRAM, QD (5 MG, 2X/DAY, 1-0-1)
     Route: 065
  71. AMLODIPINE [Concomitant]
     Active Substance: AMLODIPINE BESYLATE
     Dosage: 10 MILLIGRAM, QD (5 MG, 2X/DAY, 1-0-1)
  72. AMLODIPINE [Concomitant]
     Active Substance: AMLODIPINE BESYLATE
     Dosage: 10 MILLIGRAM, QD (5 MG, 2X/DAY, 1-0-1)
  73. AMLODIPINE [Concomitant]
     Active Substance: AMLODIPINE BESYLATE
     Dosage: 5 MILLIGRAM, BID, 1-0-1
     Route: 065
  74. AMLODIPINE [Concomitant]
     Active Substance: AMLODIPINE BESYLATE
     Dosage: 5 MILLIGRAM, BID, 1-0-1
     Route: 065
  75. AMLODIPINE [Concomitant]
     Active Substance: AMLODIPINE BESYLATE
     Dosage: 5 MILLIGRAM, BID, 1-0-1
  76. AMLODIPINE [Concomitant]
     Active Substance: AMLODIPINE BESYLATE
     Dosage: 5 MILLIGRAM, BID, 1-0-1
  77. AMLODIPINE [Concomitant]
     Active Substance: AMLODIPINE BESYLATE
     Dosage: 10 MILLIGRAM, QD (5 MG, 2X/DAY, 1-0-1)
  78. AMLODIPINE [Concomitant]
     Active Substance: AMLODIPINE BESYLATE
     Dosage: 10 MILLIGRAM, QD (5 MG, 2X/DAY, 1-0-1)
  79. AMLODIPINE [Concomitant]
     Active Substance: AMLODIPINE BESYLATE
     Dosage: 10 MILLIGRAM, QD (5 MG, 2X/DAY, 1-0-1)
     Route: 065
  80. AMLODIPINE [Concomitant]
     Active Substance: AMLODIPINE BESYLATE
     Dosage: 10 MILLIGRAM, QD (5 MG, 2X/DAY, 1-0-1)
     Route: 065
  81. ROSUVASTATIN [Concomitant]
     Active Substance: ROSUVASTATIN
     Dosage: 40 MILLIGRAM, QD, 0-0-1
  82. ROSUVASTATIN [Concomitant]
     Active Substance: ROSUVASTATIN
     Dosage: 40 MILLIGRAM, QD, 0-0-1
  83. ROSUVASTATIN [Concomitant]
     Active Substance: ROSUVASTATIN
     Dosage: 40 MILLIGRAM, QD, 0-0-1
     Route: 065
  84. ROSUVASTATIN [Concomitant]
     Active Substance: ROSUVASTATIN
     Dosage: 40 MILLIGRAM, QD, 0-0-1
     Route: 065
  85. ROSUVASTATIN [Concomitant]
     Active Substance: ROSUVASTATIN
     Dosage: 40 MILLIGRAM, QD, 0-0-1
  86. ROSUVASTATIN [Concomitant]
     Active Substance: ROSUVASTATIN
     Dosage: 40 MILLIGRAM, QD, 0-0-1
  87. ROSUVASTATIN [Concomitant]
     Active Substance: ROSUVASTATIN
     Dosage: 40 MILLIGRAM, QD, 0-0-1
     Route: 065
  88. ROSUVASTATIN [Concomitant]
     Active Substance: ROSUVASTATIN
     Dosage: 40 MILLIGRAM, QD, 0-0-1
     Route: 065
  89. ASPIRIN [Concomitant]
     Active Substance: ASPIRIN
     Dosage: 100 MILLIGRAM, QD, 1-0-0
  90. ASPIRIN [Concomitant]
     Active Substance: ASPIRIN
     Dosage: 100 MILLIGRAM, QD, 1-0-0
  91. ASPIRIN [Concomitant]
     Active Substance: ASPIRIN
     Dosage: 100 MILLIGRAM, QD, 1-0-0
     Route: 065
  92. ASPIRIN [Concomitant]
     Active Substance: ASPIRIN
     Dosage: 100 MILLIGRAM, QD, 1-0-0
     Route: 065
  93. ASPIRIN [Concomitant]
     Active Substance: ASPIRIN
     Dosage: 100 MILLIGRAM, QD, 1-0-0
  94. ASPIRIN [Concomitant]
     Active Substance: ASPIRIN
     Dosage: 100 MILLIGRAM, QD, 1-0-0
  95. ASPIRIN [Concomitant]
     Active Substance: ASPIRIN
     Dosage: 100 MILLIGRAM, QD, 1-0-0
     Route: 065
  96. ASPIRIN [Concomitant]
     Active Substance: ASPIRIN
     Dosage: 100 MILLIGRAM, QD, 1-0-0
     Route: 065
  97. METOPROLOL [Concomitant]
     Active Substance: METOPROLOL
     Dosage: 47.5 MILLIGRAM, BID, 1-0-1
  98. METOPROLOL [Concomitant]
     Active Substance: METOPROLOL
     Dosage: 47.5 MILLIGRAM, BID, 1-0-1
  99. METOPROLOL [Concomitant]
     Active Substance: METOPROLOL
     Dosage: 47.5 MILLIGRAM, BID, 1-0-1
     Route: 065
  100. METOPROLOL [Concomitant]
     Active Substance: METOPROLOL
     Dosage: 47.5 MILLIGRAM, BID, 1-0-1
     Route: 065
  101. METOPROLOL [Concomitant]
     Active Substance: METOPROLOL
     Dosage: 95 MILLIGRAM, QD (47.5 MG, 2X/DAY, 1-0-1)
     Route: 065
  102. METOPROLOL [Concomitant]
     Active Substance: METOPROLOL
     Dosage: 95 MILLIGRAM, QD (47.5 MG, 2X/DAY, 1-0-1)
     Route: 065
  103. METOPROLOL [Concomitant]
     Active Substance: METOPROLOL
     Dosage: 95 MILLIGRAM, QD (47.5 MG, 2X/DAY, 1-0-1)
  104. METOPROLOL [Concomitant]
     Active Substance: METOPROLOL
     Dosage: 95 MILLIGRAM, QD (47.5 MG, 2X/DAY, 1-0-1)
  105. METOPROLOL [Concomitant]
     Active Substance: METOPROLOL
     Dosage: 95 MILLIGRAM, QD (47.5 MG, 2X/DAY, 1-0-1)
     Route: 065
  106. METOPROLOL [Concomitant]
     Active Substance: METOPROLOL
     Dosage: 95 MILLIGRAM, QD (47.5 MG, 2X/DAY, 1-0-1)
     Route: 065
  107. METOPROLOL [Concomitant]
     Active Substance: METOPROLOL
     Dosage: 95 MILLIGRAM, QD (47.5 MG, 2X/DAY, 1-0-1)
  108. METOPROLOL [Concomitant]
     Active Substance: METOPROLOL
     Dosage: 95 MILLIGRAM, QD (47.5 MG, 2X/DAY, 1-0-1)
  109. METOPROLOL [Concomitant]
     Active Substance: METOPROLOL
     Dosage: 47.5 MILLIGRAM, BID, 1-0-1
  110. METOPROLOL [Concomitant]
     Active Substance: METOPROLOL
     Dosage: 47.5 MILLIGRAM, BID, 1-0-1
  111. METOPROLOL [Concomitant]
     Active Substance: METOPROLOL
     Dosage: 47.5 MILLIGRAM, BID, 1-0-1
     Route: 065
  112. METOPROLOL [Concomitant]
     Active Substance: METOPROLOL
     Dosage: 47.5 MILLIGRAM, BID, 1-0-1
     Route: 065
  113. Nitrangin [Concomitant]
  114. Nitrangin [Concomitant]
  115. Nitrangin [Concomitant]
     Route: 065
  116. Nitrangin [Concomitant]
     Route: 065
  117. Nitrangin [Concomitant]
  118. Nitrangin [Concomitant]
  119. Nitrangin [Concomitant]
     Route: 065
  120. Nitrangin [Concomitant]
     Route: 065
  121. JARDIANCE [Concomitant]
     Active Substance: EMPAGLIFLOZIN
     Dosage: 10 MILLIGRAM, QD, 1-0-0
  122. JARDIANCE [Concomitant]
     Active Substance: EMPAGLIFLOZIN
     Dosage: 10 MILLIGRAM, QD, 1-0-0
  123. JARDIANCE [Concomitant]
     Active Substance: EMPAGLIFLOZIN
     Dosage: 10 MILLIGRAM, QD, 1-0-0
     Route: 065
  124. JARDIANCE [Concomitant]
     Active Substance: EMPAGLIFLOZIN
     Dosage: 10 MILLIGRAM, QD, 1-0-0
     Route: 065
  125. JARDIANCE [Concomitant]
     Active Substance: EMPAGLIFLOZIN
     Dosage: 10 MILLIGRAM, QD, 1-0-0
  126. JARDIANCE [Concomitant]
     Active Substance: EMPAGLIFLOZIN
     Dosage: 10 MILLIGRAM, QD, 1-0-0
  127. JARDIANCE [Concomitant]
     Active Substance: EMPAGLIFLOZIN
     Dosage: 10 MILLIGRAM, QD, 1-0-0
     Route: 065
  128. JARDIANCE [Concomitant]
     Active Substance: EMPAGLIFLOZIN
     Dosage: 10 MILLIGRAM, QD, 1-0-0
     Route: 065
  129. DESOGESTREL [Concomitant]
     Active Substance: DESOGESTREL
     Dosage: 75 MICROGRAM, QD, 0-0-1
  130. DESOGESTREL [Concomitant]
     Active Substance: DESOGESTREL
     Dosage: 75 MICROGRAM, QD, 0-0-1
  131. DESOGESTREL [Concomitant]
     Active Substance: DESOGESTREL
     Dosage: 75 MICROGRAM, QD, 0-0-1
     Route: 065
  132. DESOGESTREL [Concomitant]
     Active Substance: DESOGESTREL
     Dosage: 75 MICROGRAM, QD, 0-0-1
     Route: 065
  133. DESOGESTREL [Concomitant]
     Active Substance: DESOGESTREL
     Dosage: 75 MICROGRAM, QD, 0-0-1
  134. DESOGESTREL [Concomitant]
     Active Substance: DESOGESTREL
     Dosage: 75 MICROGRAM, QD, 0-0-1
  135. DESOGESTREL [Concomitant]
     Active Substance: DESOGESTREL
     Dosage: 75 MICROGRAM, QD, 0-0-1
     Route: 065
  136. DESOGESTREL [Concomitant]
     Active Substance: DESOGESTREL
     Dosage: 75 MICROGRAM, QD, 0-0-1
     Route: 065

REACTIONS (34)
  - Bipolar disorder [Recovered/Resolved]
  - Atonic urinary bladder [Not Recovered/Not Resolved]
  - Toothache [Recovered/Resolved]
  - Eye pain [Recovering/Resolving]
  - Feeling cold [Recovered/Resolved]
  - Noninfective gingivitis [Unknown]
  - COVID-19 [Recovered/Resolved]
  - Arthritis [Recovered/Resolved]
  - Vulvovaginal mycotic infection [Recovered/Resolved]
  - Hypotension [Recovered/Resolved]
  - Vomiting [Recovered/Resolved]
  - Visual impairment [Not Recovered/Not Resolved]
  - Red blood cell count increased [Not Recovered/Not Resolved]
  - Injection site erythema [Recovered/Resolved]
  - Malaise [Recovered/Resolved]
  - Nasopharyngitis [Recovered/Resolved]
  - Motor dysfunction [Not Recovered/Not Resolved]
  - Inflammatory marker increased [Recovered/Resolved]
  - Tremor [Not Recovered/Not Resolved]
  - Hypertension [Recovered/Resolved]
  - Muscle spasms [Recovered/Resolved]
  - Muscular weakness [Recovering/Resolving]
  - Pain in extremity [Recovered/Resolved]
  - Nausea [Recovered/Resolved]
  - Fatigue [Recovered/Resolved]
  - Diarrhoea [Recovered/Resolved]
  - Rash [Recovered/Resolved]
  - Influenza [Recovered/Resolved]
  - Pyrexia [Recovered/Resolved]
  - Headache [Recovered/Resolved]
  - Gastrointestinal infection [Recovered/Resolved]
  - Pain [Recovered/Resolved]
  - Off label use [Unknown]
  - Uterine prolapse [Not Recovered/Not Resolved]

NARRATIVE: CASE EVENT DATE: 20210204
